FAERS Safety Report 9773488 (Version 1)
Quarter: 2013Q4

REPORT INFORMATION
  Report Type: Report from Study
  Country: US (occurrence: US)
  Receive Date: 20131219
  Receipt Date: 20131219
  Transmission Date: 20140711
  Serious: Yes (Hospitalization)
  Sender: FDA-Public Use
  Company Number: US-ABBVIE-13P-163-1181380-00

PATIENT
  Sex: Male

DRUGS (1)
  1. CREON [Suspect]
     Indication: PANCREATIC INSUFFICIENCY

REACTIONS (1)
  - Malaise [Unknown]
